FAERS Safety Report 5166454-0 (Version None)
Quarter: 2006Q4

REPORT INFORMATION
  Report Type: 
  Country: None (occurrence: None)
  Receive Date: 20061130
  Receipt Date: 20061130
  Transmission Date: 20070319
  Serious: Yes (Hospitalization)
  Sender: FDA-Public Use
  Company Number: None

PATIENT
  Age: 65 Year
  Sex: Female

DRUGS (14)
  1. ZOCOR [Suspect]
     Indication: HYPERLIPIDAEMIA
     Dosage: 20 MG DAILY PO
     Route: 048
  2. PLAVIX [Concomitant]
  3. ASPIRIN [Concomitant]
  4. PREVACID [Concomitant]
  5. CEFEPIME [Concomitant]
  6. PROMOD [Concomitant]
  7. LOTRIMIN [Concomitant]
  8. REGLAN [Concomitant]
  9. ZANTAC [Concomitant]
  10. DIGOXIN [Concomitant]
  11. LOPRESSOR [Concomitant]
  12. HEPARIN [Concomitant]
  13. SUBCUT [Concomitant]
  14. NITROGLYCERIN [Concomitant]

REACTIONS (1)
  - LIVER FUNCTION TEST ABNORMAL [None]
